FAERS Safety Report 8509558-4 (Version None)
Quarter: 2012Q3

REPORT INFORMATION
  Report Type: 
  Country: None (occurrence: None)
  Receive Date: 20120713
  Receipt Date: 20120705
  Transmission Date: 20120928
  Serious: Yes (Other)
  Sender: FDA-Public Use
  Company Number: US-BRISTOL-MYERS SQUIBB COMPANY-16742561

PATIENT
  Age: 51 Year
  Sex: Male
  Weight: 71 kg

DRUGS (1)
  1. ABATACEPT SUBQ INJECTION 125MG/ML [Suspect]
     Indication: PSORIATIC ARTHROPATHY
     Dosage: LAST DOSE-02JUL12 OR 03JUL2012
     Dates: start: 20111201

REACTIONS (4)
  - DRUG DOSE OMISSION [None]
  - ARTHROPATHY [None]
  - DRUG INEFFECTIVE [None]
  - CYST [None]
